FAERS Safety Report 15546467 (Version 1)
Quarter: 2018Q4

REPORT INFORMATION
  Report Type: Spontaneous
  Country: US (occurrence: US)
  Receive Date: 20181023
  Receipt Date: 20181023
  Transmission Date: 20190205
  Serious: Yes (Other)
  Sender: FDA-Public Use
  Company Number: None

PATIENT
  Age: 69 Year
  Sex: Male
  Weight: 74.52 kg

DRUGS (12)
  1. DUTASTERIDE. [Concomitant]
     Active Substance: DUTASTERIDE
  2. LORAZEPAM. [Concomitant]
     Active Substance: LORAZEPAM
  3. VITAMIN D2 [Concomitant]
     Active Substance: ERGOCALCIFEROL
  4. MEKTOVI [Concomitant]
     Active Substance: BINIMETINIB
  5. SERTRALINE [Concomitant]
     Active Substance: SERTRALINE HYDROCHLORIDE
  6. BRAFTOVI [Concomitant]
     Active Substance: ENCORAFENIB
  7. LISINOPRIL. [Concomitant]
     Active Substance: LISINOPRIL
  8. ATORVASTATIN [Concomitant]
     Active Substance: ATORVASTATIN
  9. COTELLIC [Suspect]
     Active Substance: COBIMETINIB
     Indication: MALIGNANT MELANOMA
     Route: 048
     Dates: start: 20180926
  10. TAMSULOSIN [Concomitant]
     Active Substance: TAMSULOSIN
  11. PROPRANOLOL [Concomitant]
     Active Substance: PROPRANOLOL HYDROCHLORIDE
  12. ZELBORAF [Suspect]
     Active Substance: VEMURAFENIB
     Indication: MALIGNANT MELANOMA
     Route: 048
     Dates: start: 20180926

REACTIONS (3)
  - Therapy cessation [None]
  - Pyrexia [None]
  - Myalgia [None]

NARRATIVE: CASE EVENT DATE: 20181022
